FAERS Safety Report 5569963-5 (Version None)
Quarter: 2007Q4

REPORT INFORMATION
  Report Type: 
  Country: None (occurrence: None)
  Receive Date: 20071220
  Receipt Date: 20071212
  Transmission Date: 20080405
  Serious: Yes (Hospitalization)
  Sender: FDA-Public Use
  Company Number: US-GENENTECH-252799

PATIENT
  Sex: Male
  Weight: 94.5 kg

DRUGS (31)
  1. RITUXIMAB [Suspect]
     Indication: SYSTEMIC LUPUS ERYTHEMATOSUS
     Dosage: 1 G, X4
     Route: 042
     Dates: start: 20070604
  2. AMPHOTERICIN B [Concomitant]
     Indication: DRUG USE FOR UNKNOWN INDICATION
     Dates: end: 20070919
  3. ARANESP [Concomitant]
     Indication: ANAEMIA
     Dosage: 100 A?G, 1/WEEK
     Route: 058
  4. CEFEPIME [Concomitant]
     Indication: DRUG USE FOR UNKNOWN INDICATION
  5. DEMADEX [Concomitant]
     Indication: DRUG USE FOR UNKNOWN INDICATION
  6. ENOXAPARIN SODIUM [Concomitant]
     Indication: DRUG USE FOR UNKNOWN INDICATION
     Dosage: 40 MG, QD
     Route: 058
  7. EPOETIN ALFA [Concomitant]
     Indication: DRUG USE FOR UNKNOWN INDICATION
     Dosage: 40000 IU, 1/WEEK
     Route: 058
  8. FERROUS SULFATE TAB [Concomitant]
     Indication: MEDICAL DIET
     Dosage: 325 MG, BID
     Route: 048
  9. FLONASE [Concomitant]
     Indication: DRUG USE FOR UNKNOWN INDICATION
     Dosage: 2 PUFF, TID
     Route: 045
  10. HUMULIN 70/30 [Concomitant]
     Indication: DIABETES MELLITUS
  11. HYDROCODONE BITARTRATE [Concomitant]
     Indication: PAIN
     Dosage: 1 TABLET, PRN
     Route: 048
     Dates: start: 20070812, end: 20071004
  12. HYDROXYCHLOROQUINE SULFATE [Concomitant]
     Indication: LUPUS NEPHRITIS
     Dosage: 200 MG, Q12H
     Route: 048
  13. INSULIN [Concomitant]
     Indication: DIABETES MELLITUS
     Route: 058
  14. IPRATROPIUM-BROMID [Concomitant]
     Indication: DRUG USE FOR UNKNOWN INDICATION
  15. LEVALBUTEROL HCL [Concomitant]
     Indication: DRUG USE FOR UNKNOWN INDICATION
     Dosage: 1.25 MG, QID
     Route: 055
  16. LEVAQUIN [Concomitant]
     Indication: PNEUMONIA CRYPTOCOCCAL
     Dosage: 750 MG, QD
     Route: 042
     Dates: start: 20070811, end: 20070812
  17. LISINOPRIL [Concomitant]
     Indication: HYPERTENSION
     Dosage: 20 MG, BID
     Route: 048
     Dates: start: 20070420
  18. LOPERAMIDE HCL [Concomitant]
     Indication: DRUG USE FOR UNKNOWN INDICATION
     Dosage: 2 MG, QD
     Route: 048
  19. LOVENOX [Concomitant]
     Indication: DRUG USE FOR UNKNOWN INDICATION
     Dosage: 40 MG, QD
     Route: 058
     Dates: start: 20070811
  20. METOPROLOL SUCCINATE [Concomitant]
     Indication: HYPERTENSION
     Dosage: 50 MG, BID
     Route: 048
     Dates: end: 20071009
  21. NEBULIZER TREATMENT (UNK INGREDIENTS) [Concomitant]
     Indication: DRUG USE FOR UNKNOWN INDICATION
     Dosage: UNK, PRN
     Dates: start: 20070812, end: 20070914
  22. NORVASC [Concomitant]
     Indication: HYPERTENSION
     Dosage: 10 MG, BID
     Route: 048
     Dates: end: 20070906
  23. PHENERGAN HCL [Concomitant]
     Indication: DRUG USE FOR UNKNOWN INDICATION
     Dosage: UNK, PRN
  24. PREDNISONE [Concomitant]
     Indication: LUPUS NEPHRITIS
     Dosage: 10 MG, QD
     Route: 048
     Dates: end: 20070925
  25. PROCRIT [Concomitant]
     Indication: HYPERTENSION
  26. OXYGEN [Concomitant]
     Indication: RESPIRATORY FAILURE
     Dosage: UNK, PRN
     Route: 045
     Dates: start: 20070811, end: 20070914
  27. VANCOMYCIN [Concomitant]
     Indication: PNEUMONIA CRYPTOCOCCAL
     Dosage: 1.4 G, QD
     Route: 042
     Dates: start: 20070811, end: 20070812
  28. XANAX [Concomitant]
     Indication: DRUG USE FOR UNKNOWN INDICATION
     Dosage: 0.25 MG, Q8H
     Route: 048
  29. XOPENEX [Concomitant]
     Indication: DRUG USE FOR UNKNOWN INDICATION
  30. ZOFRAN [Concomitant]
     Indication: DRUG USE FOR UNKNOWN INDICATION
     Dosage: UNK, PRN
     Route: 042
  31. ZOSYN [Concomitant]
     Indication: DRUG USE FOR UNKNOWN INDICATION
     Dosage: 3375 G, Q8H
     Route: 042
     Dates: start: 20070811

REACTIONS (1)
  - FUNGAL SEPSIS [None]
